FAERS Safety Report 7909176-2 (Version None)
Quarter: 2011Q4

REPORT INFORMATION
  Report Type: 
  Country: None (occurrence: None)
  Receive Date: 20111111
  Receipt Date: 20110517
  Transmission Date: 20120403
  Serious: No
  Sender: FDA-Public Use
  Company Number: US-GLAXOSMITHKLINE-A0929034A

PATIENT
  Sex: Female

DRUGS (1)
  1. COREG [Suspect]
     Indication: HEART RATE INCREASED

REACTIONS (1)
  - THERAPEUTIC RESPONSE DECREASED [None]
